FAERS Safety Report 5454548-1 (Version None)
Quarter: 2007Q3

REPORT INFORMATION
  Report Type: 
  Country: None (occurrence: None)
  Receive Date: 20070917
  Receipt Date: 20060829
  Transmission Date: 20080115
  Serious: No
  Sender: FDA-Public Use
  Company Number: US-ASTRAZENECA-2006UW17060

PATIENT
  Age: 26 Year
  Sex: Female

DRUGS (4)
  1. SEROQUEL [Suspect]
     Indication: ANTIDEPRESSANT THERAPY
     Route: 048
  2. SEROQUEL [Suspect]
     Dosage: 100 MG AT NIGHT AND 50 MG DURING THE DAY
     Route: 048
  3. EFFEXOR [Concomitant]
  4. SYNTHROID [Concomitant]

REACTIONS (1)
  - BLOOD PROLACTIN INCREASED [None]
